FAERS Safety Report 7391987-6 (Version None)
Quarter: 2011Q2

REPORT INFORMATION
  Report Type: 
  Country: None (occurrence: None)
  Receive Date: 20110404
  Receipt Date: 20110321
  Transmission Date: 20111010
  Serious: Yes (Other)
  Sender: FDA-Public Use
  Company Number: PHHO2011IT05025

PATIENT
  Sex: Male
  Weight: 69 kg

DRUGS (4)
  1. REPAGLINIDE [Concomitant]
     Indication: HYPERGLYCAEMIA
  2. MAALOX [Concomitant]
     Indication: ABDOMINAL PAIN UPPER
  3. AMN107 [Suspect]
     Indication: CHRONIC MYELOID LEUKAEMIA
  4. DEURSIL [Concomitant]
     Indication: CHOLELITHIASIS

REACTIONS (1)
  - FEMORAL ARTERY OCCLUSION [None]
